FAERS Safety Report 25996000 (Version 1)
Quarter: 2025Q4

REPORT INFORMATION
  Report Type: Spontaneous
  Country: CN (occurrence: CN)
  Receive Date: 20251104
  Receipt Date: 20251104
  Transmission Date: 20260118
  Serious: Yes (Hospitalization)
  Sender: PFIZER
  Company Number: CN-PFIZER INC-PV202500128226

PATIENT
  Age: 52 Year
  Sex: Female
  Weight: 61.5 kg

DRUGS (2)
  1. EPIRUBICIN [Suspect]
     Active Substance: EPIRUBICIN
     Indication: Breast cancer female
     Dosage: 130 MG, EVERY 3 WEEKS (ONCE EVERY 21 DAYS)
     Route: 041
     Dates: start: 20250731, end: 20250930
  2. CYCLOPHOSPHAMIDE [Suspect]
     Active Substance: CYCLOPHOSPHAMIDE
     Indication: Breast cancer female
     Dosage: 0.95 G, EVERY 3 WEEKS  (ONCE EVERY 21 DAYS)
     Route: 041
     Dates: start: 20250731, end: 20250930

REACTIONS (1)
  - Drug-induced liver injury [Recovering/Resolving]

NARRATIVE: CASE EVENT DATE: 20251020
